FAERS Safety Report 9127006 (Version 3)
Quarter: 2013Q2

REPORT INFORMATION
  Report Type: Report from Study
  Country: FR (occurrence: FR)
  Receive Date: 20130228
  Receipt Date: 20130528
  Transmission Date: 20140414
  Serious: Yes (Hospitalization, Other)
  Sender: FDA-Public Use
  Company Number: PHHY2013FR019127

PATIENT
  Age: 60 Year
  Sex: Male
  Weight: 128 kg

DRUGS (8)
  1. TASIGNA [Suspect]
     Indication: CHRONIC MYELOID LEUKAEMIA
     Dosage: 400 MG, BID
     Route: 048
     Dates: start: 20120402, end: 20120920
  2. ISOPTINE [Concomitant]
     Indication: HYPERTENSION
     Dosage: 120 MG, BID
  3. ISOPTINE [Concomitant]
     Dosage: UNK
  4. TRIATEC [Concomitant]
     Indication: HYPERTENSION
     Dosage: 10 MG, QD
  5. OMACOR [Concomitant]
     Indication: THROMBOSIS
     Dates: start: 2005
  6. KARDEGIC [Concomitant]
     Indication: THROMBOSIS
     Dosage: 75 MG, QD
     Dates: start: 2005
  7. MAGNE B6 [Concomitant]
     Indication: MAGNESIUM DEFICIENCY
     Dates: start: 20120403
  8. LANZOR [Concomitant]
     Dosage: 30 MG, QD

REACTIONS (5)
  - Infarction [Recovered/Resolved with Sequelae]
  - Arteriosclerosis coronary artery [Unknown]
  - Coronary artery stenosis [Unknown]
  - Chest pain [Recovered/Resolved with Sequelae]
  - Troponin increased [Recovered/Resolved with Sequelae]
